FAERS Safety Report 7507291-9 (Version None)
Quarter: 2011Q2

REPORT INFORMATION
  Report Type: 
  Country: None (occurrence: None)
  Receive Date: 20110526
  Receipt Date: 20110516
  Transmission Date: 20111010
  Serious: Yes (Hospitalization, Congenital Anomaly, Other)
  Sender: FDA-Public Use
  Company Number: US-PFIZER INC-2011105820

PATIENT
  Sex: Female
  Weight: 3 kg

DRUGS (12)
  1. PRENATAL VITAMINS [Concomitant]
     Dosage: UNK
     Route: 064
  2. ZITHROMAX [Concomitant]
     Dosage: UNK
     Route: 064
  3. EFFEXOR XR [Suspect]
     Dosage: 150 MG, 1X/DAY
     Route: 064
  4. PROMETHAZINE HYDROCHLORIDE [Concomitant]
     Dosage: UNK
     Route: 064
  5. ACETAMINOPHEN [Concomitant]
     Dosage: AS NEEDED
     Route: 064
  6. LOPRESSOR [Concomitant]
     Dosage: 50 MG, 2X/DAY
     Route: 064
  7. DEMEROL [Concomitant]
     Dosage: UNK
     Route: 064
  8. DECADRON [Concomitant]
     Dosage: UNK
     Route: 064
  9. LORTAB [Concomitant]
     Dosage: UNK
     Route: 064
  10. AMPICILLIN SODIUM/SULBACTAM SODIUM [Concomitant]
     Dosage: UNK
     Route: 064
  11. ZOFRAN [Concomitant]
     Dosage: AS NEEDED
     Route: 064
  12. LIDOCAINE [Concomitant]
     Dosage: UNK
     Route: 064

REACTIONS (22)
  - DRUG EXPOSURE DURING PREGNANCY [None]
  - SHONE COMPLEX [None]
  - ACUTE TONSILLITIS [None]
  - GASTROENTERITIS [None]
  - ATRIAL SEPTAL DEFECT [None]
  - FAILURE TO THRIVE [None]
  - DYSPHAGIA [None]
  - OTITIS MEDIA ACUTE [None]
  - PATENT DUCTUS ARTERIOSUS [None]
  - VENTRICULAR HYPERTROPHY [None]
  - ROTAVIRUS INFECTION [None]
  - PYREXIA [None]
  - HYPOPLASTIC LEFT HEART SYNDROME [None]
  - DILATATION VENTRICULAR [None]
  - TRICUSPID VALVE INCOMPETENCE [None]
  - RASH [None]
  - TEETHING [None]
  - VENTRICULAR SEPTAL DEFECT [None]
  - RIGHT ATRIAL DILATATION [None]
  - UPPER RESPIRATORY TRACT INFECTION [None]
  - GASTROOESOPHAGEAL REFLUX DISEASE [None]
  - CERUMEN IMPACTION [None]
